FAERS Safety Report 6145945-X (Version None)
Quarter: 2009Q2

REPORT INFORMATION
  Report Type: 
  Country: None (occurrence: None)
  Receive Date: 20090407
  Receipt Date: 20090331
  Transmission Date: 20091009
  Serious: Yes (Death, Other)
  Sender: FDA-Public Use
  Company Number: JP-ELI_LILLY_AND_COMPANY-JP200712003824

PATIENT
  Sex: Female
  Weight: 53 kg

DRUGS (4)
  1. RALOXIFENE HYDROCHLORIDE [Suspect]
     Indication: OSTEOPOROSIS POSTMENOPAUSAL
     Dosage: 60 MG, DAILY (1/D)
     Route: 048
     Dates: start: 20041101, end: 20061218
  2. PREDONINE [Concomitant]
     Indication: RHEUMATOID ARTHRITIS
     Dosage: 5 MG, DAILY (1/D)
     Route: 048
     Dates: start: 20010515, end: 20061218
  3. RHEUMATREX [Concomitant]
     Indication: RHEUMATOID ARTHRITIS
     Dosage: 2 MG, DAILY (1/D)
     Route: 048
     Dates: start: 20060315
  4. RHEUMATREX [Concomitant]
     Dosage: 4 MG, DAILY (1/D)
     Route: 048
     Dates: end: 20061218

REACTIONS (2)
  - CONSTIPATION [None]
  - NEOPLASM MALIGNANT [None]
